FAERS Safety Report 15704337 (Version 1)
Quarter: 2018Q4

REPORT INFORMATION
  Report Type: Spontaneous
  Country: GB (occurrence: GB)
  Receive Date: 20181210
  Receipt Date: 20181210
  Transmission Date: 20190205
  Serious: Yes (Hospitalization, Other)
  Sender: FDA-Public Use
  Company Number: PHHY2018GB178158

PATIENT
  Age: 58 Year
  Sex: Male

DRUGS (3)
  1. CARBAMAZEPINE. [Suspect]
     Active Substance: CARBAMAZEPINE
     Indication: PRODUCT USED FOR UNKNOWN INDICATION
     Dosage: UNK
     Route: 065
  2. PIRITON [Concomitant]
     Active Substance: CHLORPHENIRAMINE MALEATE
     Indication: PRODUCT USED FOR UNKNOWN INDICATION
     Dosage: 2 MG, UNK
     Route: 065
  3. PHENYTOIN. [Suspect]
     Active Substance: PHENYTOIN
     Indication: MENINGIOMA
     Dosage: 250 MG, QD
     Route: 048
     Dates: start: 20070326

REACTIONS (11)
  - Muscle atrophy [Unknown]
  - Dry skin [Unknown]
  - Urticaria [Unknown]
  - Dyspnoea [Unknown]
  - Weight decreased [Unknown]
  - Blood phosphorus increased [Unknown]
  - Paraesthesia [Unknown]
  - Blood cholesterol increased [Unknown]
  - Dyspnoea exertional [Unknown]
  - Gamma-glutamyltransferase increased [Unknown]
  - Rash [Unknown]

NARRATIVE: CASE EVENT DATE: 2007
